FAERS Safety Report 8223003-8 (Version None)
Quarter: 2012Q1

REPORT INFORMATION
  Report Type: 
  Country: None (occurrence: None)
  Receive Date: 20120320
  Receipt Date: 20120312
  Transmission Date: 20120608
  Serious: Yes (Hospitalization)
  Sender: FDA-Public Use
  Company Number: US-ASTRAZENECA-2011SE41550

PATIENT
  Age: 53 Year
  Sex: Female

DRUGS (11)
  1. NEXIUM [Suspect]
     Route: 048
     Dates: start: 20040201, end: 20061101
  2. PEPTO-BISMOL  OTC [Concomitant]
     Dosage: AS NEEDED
  3. LISINOPRIL [Concomitant]
     Indication: HYPERTENSION
  4. LANTUS [Concomitant]
     Indication: DIABETES MELLITUS
  5. VICODON [Concomitant]
     Indication: PAIN
  6. NEXIUM [Suspect]
     Route: 048
     Dates: start: 20040201, end: 20061101
  7. METFORMIN HCL [Concomitant]
     Indication: DIABETES MELLITUS
  8. AMLODIPINE [Concomitant]
     Indication: HYPERTENSION
  9. SIMVASTATIN [Concomitant]
     Indication: MEDICAL DIET
  10. NEXIUM [Suspect]
     Indication: GASTROOESOPHAGEAL REFLUX DISEASE
     Route: 048
  11. NEXIUM [Suspect]
     Route: 048

REACTIONS (2)
  - UPPER LIMB FRACTURE [None]
  - DEPRESSION [None]
